FAERS Safety Report 16105082 (Version 1)
Quarter: 2019Q1

REPORT INFORMATION
  Report Type: Spontaneous
  Country: US (occurrence: US)
  Receive Date: 20190322
  Receipt Date: 20190322
  Transmission Date: 20190418
  Serious: No
  Sender: FDA-Public Use
  Company Number: US-ENDO PHARMACEUTICALS INC-2019-100413

PATIENT
  Age: 53 Year
  Sex: Male
  Weight: 99.77 kg

DRUGS (5)
  1. AVEED [Suspect]
     Active Substance: TESTOSTERONE UNDECANOATE
     Dosage: UNK UNKNOWN, FIRST INJECTION
     Route: 065
     Dates: start: 20181116
  2. BYSTOLIC [Concomitant]
     Active Substance: NEBIVOLOL HYDROCHLORIDE
     Indication: HYPERTENSION
  3. CELEBREX [Concomitant]
     Active Substance: CELECOXIB
     Indication: BACK PAIN
  4. AVEED [Suspect]
     Active Substance: TESTOSTERONE UNDECANOATE
     Indication: BLOOD TESTOSTERONE DECREASED
     Dosage: UNK UNKNOWN, SECOND INJECTION
     Route: 065
     Dates: start: 20181217
  5. OMEPRAZOLE. [Concomitant]
     Active Substance: OMEPRAZOLE
     Indication: GASTRIC DISORDER

REACTIONS (7)
  - Drug ineffective [Not Recovered/Not Resolved]
  - Penile pain [Not Recovered/Not Resolved]
  - Libido decreased [Not Recovered/Not Resolved]
  - Asthenia [Not Recovered/Not Resolved]
  - Penile contusion [Not Recovered/Not Resolved]
  - Depressed mood [Not Recovered/Not Resolved]
  - Testicular pain [Not Recovered/Not Resolved]

NARRATIVE: CASE EVENT DATE: 201811
